FAERS Safety Report 18455403 (Version 1)
Quarter: 2020Q4

REPORT INFORMATION
  Report Type: Spontaneous
  Country: DE (occurrence: DE)
  Receive Date: 20201103
  Receipt Date: 20201103
  Transmission Date: 20210114
  Serious: Yes (Hospitalization)
  Sender: FDA-Public Use
  Company Number: DE-ROCHE-2707024

PATIENT
  Age: 33 Year
  Sex: Male
  Weight: 107 kg

DRUGS (2)
  1. DEKRISTOL [Concomitant]
     Active Substance: CHOLECALCIFEROL
     Indication: VITAMIN D DEFICIENCY
  2. OCRELIZUMAB. [Suspect]
     Active Substance: OCRELIZUMAB
     Indication: MULTIPLE SCLEROSIS
     Route: 042
     Dates: start: 201904

REACTIONS (1)
  - Hypersensitivity pneumonitis [Not Recovered/Not Resolved]

NARRATIVE: CASE EVENT DATE: 20200515
